FAERS Safety Report 9633813 (Version 2)
Quarter: 2013Q4

REPORT INFORMATION
  Report Type: Spontaneous
  Country: PT (occurrence: PT)
  Receive Date: 20131021
  Receipt Date: 20131021
  Transmission Date: 20140711
  Serious: Yes (Hospitalization, Other)
  Sender: FDA-Public Use
  Company Number: PT-ASTELLAS-2013US010482

PATIENT
  Age: 17 Year
  Sex: Female

DRUGS (8)
  1. AMBISOME [Suspect]
     Indication: MENINGITIS CRYPTOCOCCAL
     Dosage: 3-4 MG/KG,UID/QD
     Route: 065
  2. SIROLIMUS [Interacting]
     Indication: PRODUCT USED FOR UNKNOWN INDICATION
     Dosage: 11-12 MG/ML, UNKNOWN/D
     Route: 065
  3. SIROLIMUS [Interacting]
     Dosage: 4-5 NG/ML, UNKNOWN/D
     Route: 065
  4. FLUCYTOSINE [Concomitant]
     Indication: PRODUCT USED FOR UNKNOWN INDICATION
     Dosage: UNK
     Route: 065
  5. FLUCONAZOL [Concomitant]
     Indication: PRODUCT USED FOR UNKNOWN INDICATION
     Dosage: 400 MG, UID/QD
     Route: 065
  6. PREDNISOLONE [Concomitant]
     Indication: PRODUCT USED FOR UNKNOWN INDICATION
     Dosage: 5 MG, UID/QD
     Route: 065
  7. PREDNISOLONE [Concomitant]
     Dosage: 50 MG, UID/QD
     Route: 065
  8. MYCOPHENOLATE MOFETIL [Concomitant]
     Indication: PRODUCT USED FOR UNKNOWN INDICATION
     Dosage: UNK
     Route: 065

REACTIONS (2)
  - Diabetes mellitus inadequate control [Unknown]
  - Hypokalaemia [Recovered/Resolved]
